FAERS Safety Report 8747456 (Version 5)
Quarter: 2013Q2

REPORT INFORMATION
  Report Type: Spontaneous
  Country: BR (occurrence: BR)
  Receive Date: 20120827
  Receipt Date: 20130411
  Transmission Date: 20140414
  Serious: Yes (Hospitalization, Other)
  Sender: FDA-Public Use
  Company Number: BR-PFIZER INC-2012203515

PATIENT
  Age: 63 Year
  Sex: Male
  Weight: 82 kg

DRUGS (13)
  1. LIPITOR [Suspect]
     Indication: HYPERCHOLESTEROLAEMIA
     Dosage: 10 MG, DAILY
     Route: 048
     Dates: start: 20110523
  2. LIPITOR [Suspect]
     Indication: CAROTID ARTERY OCCLUSION
     Dosage: 20 MG, DAILY
     Route: 048
  3. LIPITOR [Suspect]
     Indication: LABORATORY TEST NORMAL
     Dosage: 40 MG, DAILY
     Route: 048
  4. CITALOR [Suspect]
     Indication: CAROTID ARTERY OCCLUSION
     Dosage: 40 MG, DAILY
     Route: 048
     Dates: start: 201301
  5. CITALOR [Suspect]
     Indication: LABORATORY TEST NORMAL
  6. PLAVIX [Suspect]
     Indication: STENT PLACEMENT
     Dosage: 25 MG, UNK
     Dates: start: 201202
  7. PLAVIX [Suspect]
     Indication: ANTIPLATELET THERAPY
  8. COUMADIN [Concomitant]
     Indication: ANTICOAGULANT THERAPY
     Dosage: UNK
     Dates: start: 201202
  9. AAS [Concomitant]
     Dosage: 200 MG, UNK
  10. ATENOL [Concomitant]
     Dosage: 50
  11. OLCADIL [Concomitant]
     Indication: SEDATION
     Dosage: 2 MG, UNK
  12. ASPIRINA [Concomitant]
  13. BETASERC [Concomitant]

REACTIONS (20)
  - Ischaemic stroke [Unknown]
  - Nervous system disorder [Unknown]
  - Carotid arteriosclerosis [Unknown]
  - Cardiovascular disorder [Unknown]
  - Coronary artery occlusion [Unknown]
  - Carotid artery occlusion [Unknown]
  - Coronary artery occlusion [Unknown]
  - Skin cancer [Recovered/Resolved]
  - Carotid artery disease [Unknown]
  - Angiopathy [Unknown]
  - Meniere^s disease [Unknown]
  - Cardiac disorder [Unknown]
  - Pain [Unknown]
  - Myalgia [Unknown]
  - Diarrhoea [Unknown]
  - Constipation [Recovering/Resolving]
  - Abnormal faeces [Unknown]
  - Platelet disorder [Unknown]
  - Drug ineffective [Unknown]
  - Off label use [Unknown]
